FAERS Safety Report 4757956-7 (Version None)
Quarter: 2005Q3

REPORT INFORMATION
  Report Type: 
  Country: None (occurrence: None)
  Receive Date: 20050830
  Receipt Date: 20050817
  Transmission Date: 20060218
  Serious: Yes (Life-Threatening, Hospitalization, Other)
  Sender: FDA-Public Use
  Company Number: 2005116606

PATIENT
  Age: 76 Year
  Sex: Female

DRUGS (7)
  1. ZITHROMAX [Suspect]
     Indication: PNEUMONIA
     Dosage: (250 MG,), ORAL
     Route: 048
     Dates: start: 20050715
  2. DYAZIDE [Concomitant]
  3. TOPROL (METOPROLOL) [Concomitant]
  4. FOSAMAX [Concomitant]
  5. ASPIRIN [Concomitant]
  6. LIBRAX [Concomitant]
  7. NEXIUM [Concomitant]

REACTIONS (7)
  - BONE MARROW DEPRESSION [None]
  - HAEMORRHAGE [None]
  - PLATELET COUNT DECREASED [None]
  - PYREXIA [None]
  - RED BLOOD CELL COUNT DECREASED [None]
  - VIRAL INFECTION [None]
  - WHITE BLOOD CELL COUNT DECREASED [None]
